FAERS Safety Report 19274864 (Version 1)
Quarter: 2021Q2

REPORT INFORMATION
  Report Type: Spontaneous
  Country: US (occurrence: US)
  Receive Date: 20210519
  Receipt Date: 20210519
  Transmission Date: 20210717
  Serious: No
  Sender: FDA-Public Use
  Company Number: None

PATIENT
  Age: 72 Year
  Sex: Female

DRUGS (10)
  1. ELIQUIS [Concomitant]
     Active Substance: APIXABAN
  2. AMLODIPINE BESYLATE. [Concomitant]
     Active Substance: AMLODIPINE BESYLATE
  3. ASCORBIC ACID. [Concomitant]
     Active Substance: ASCORBIC ACID
  4. FERROUS SULFATE. [Concomitant]
     Active Substance: FERROUS SULFATE
  5. ATORVASTATIN CALCIUM. [Concomitant]
     Active Substance: ATORVASTATIN CALCIUM
  6. PREDNISONE. [Concomitant]
     Active Substance: PREDNISONE
  7. ACETAMINOPHEN 8 HOUR [Concomitant]
     Active Substance: ACETAMINOPHEN
  8. FAMOTIDINE. [Concomitant]
     Active Substance: FAMOTIDINE
  9. LEVOTHYROXINE SODIUM. [Concomitant]
     Active Substance: LEVOTHYROXINE SODIUM
  10. PROMACTA [Suspect]
     Active Substance: ELTROMBOPAG OLAMINE
     Route: 048

REACTIONS (2)
  - Therapy interrupted [None]
  - Platelet count increased [None]

NARRATIVE: CASE EVENT DATE: 20210519
